FAERS Safety Report 18034575 (Version 1)
Quarter: 2020Q3

REPORT INFORMATION
  Report Type: Report from Study
  Country: US (occurrence: US)
  Receive Date: 20200716
  Receipt Date: 20200716
  Transmission Date: 20201103
  Serious: No
  Sender: FDA-Public Use
  Company Number: NVSC2020US198502

PATIENT
  Age: 61 Year
  Sex: Female

DRUGS (1)
  1. ENTRESTO [Suspect]
     Active Substance: SACUBITRIL\VALSARTAN
     Indication: CARDIAC FAILURE
     Dosage: 24.26 MG, BID
     Route: 048
     Dates: start: 201810

REACTIONS (5)
  - Fatigue [Unknown]
  - Product dose omission issue [Unknown]
  - Fluid retention [Unknown]
  - Mobility decreased [Unknown]
  - Gait inability [Unknown]

NARRATIVE: CASE EVENT DATE: 202006
